FAERS Safety Report 8132984 (Version 8)
Quarter: 2013Q2

REPORT INFORMATION
  Report Type: Spontaneous
  Country: JP (occurrence: JP)
  Receive Date: 20110913
  Receipt Date: 20130614
  Transmission Date: 20140414
  Serious: Yes (Life-Threatening, Other)
  Sender: FDA-Public Use
  Company Number: JP-JHP PHARMACEUTICALS, LLC-JHP201100369

PATIENT
  Age: 70 Year
  Sex: Male
  Weight: 77 kg

DRUGS (13)
  1. DANTRIUM [Suspect]
     Indication: PARESIS
     Dosage: UNK
     Route: 048
     Dates: start: 200106, end: 200304
  2. DANTRIUM [Suspect]
     Dosage: 150 MG, DAILY
     Route: 048
     Dates: start: 200304
  3. DANTRIUM [Suspect]
     Dosage: 50 MG, TID
     Route: 048
     Dates: start: 20070403
  4. DANTRIUM [Suspect]
     Dosage: 75 MG, DAILY
     Route: 048
  5. DANTRIUM [Suspect]
     Dosage: 150 MG, DAILY
     Route: 048
  6. TERNELIN [Concomitant]
     Dosage: UNK
     Route: 048
     Dates: start: 20070403
  7. OPALMON [Concomitant]
     Dosage: UNK
     Dates: start: 20070403
  8. ADETPHOS [Concomitant]
     Dosage: UNK
     Route: 048
     Dates: start: 20040817
  9. METHYCOBAL [Concomitant]
     Dosage: UNK
     Route: 048
     Dates: start: 20070501
  10. NEUROTROPIN [Concomitant]
     Dosage: UNK
     Route: 048
     Dates: start: 20100728
  11. LOXONIN [Concomitant]
     Dosage: UNK
     Dates: start: 20070501
  12. VOLTAREN [Concomitant]
     Dosage: UNK
     Dates: start: 20070403
  13. BONALON [Concomitant]
     Dosage: UNK
     Route: 048
     Dates: start: 20081224

REACTIONS (3)
  - Altered state of consciousness [Unknown]
  - Syncope [Unknown]
  - Dyspnoea [Unknown]
